FAERS Safety Report 9049375 (Version 2)
Quarter: 2013Q1

REPORT INFORMATION
  Report Type: Spontaneous
  Country: CA (occurrence: CA)
  Receive Date: 20130205
  Receipt Date: 20130314
  Transmission Date: 20140127
  Serious: Yes (Other)
  Sender: FDA-Public Use
  Company Number: CA-NICOBRDEVP-2013-01189

PATIENT
  Sex: 0

DRUGS (10)
  1. GABAPENTIN (UNKNOWN) [Suspect]
     Indication: BACK PAIN
     Dosage: 200 MG EVERY 8 HOURS
     Dates: start: 20110823, end: 201202
  2. GABAPENTIN (UNKNOWN) [Suspect]
     Indication: MUSCULOSKELETAL PAIN
     Dosage: 300 MG EVERY 8 HOURS
     Dates: start: 201202, end: 20120417
  3. GABAPENTIN (UNKNOWN) [Suspect]
     Dosage: 600 MG EVERY 8 HOURS
     Dates: start: 20120417, end: 201302
  4. GABAPENTIN (UNKNOWN) [Suspect]
     Dosage: 800 MG, Q8H
     Dates: start: 201302
  5. PMS-HYDROMORPHONE [Concomitant]
     Indication: PRODUCT USED FOR UNKNOWN INDICATION
     Dosage: 2 MG, TAKE WHEN NEEDED
     Dates: start: 201202, end: 20120417
  6. PMS-HYDROMORPHONE [Concomitant]
     Dosage: 3 MG, UNK
     Dates: start: 20120417
  7. METFORMIN [Concomitant]
     Indication: PRODUCT USED FOR UNKNOWN INDICATION
     Dosage: 500 MG X 2
  8. ROSUVASTATIN [Concomitant]
     Indication: PRODUCT USED FOR UNKNOWN INDICATION
     Dosage: 10 MG X 1
  9. RAN-RABEPRAZOLE [Concomitant]
     Indication: PRODUCT USED FOR UNKNOWN INDICATION
     Dosage: 20 MG X 1
  10. HYDROMORPH CONTIN [Concomitant]
     Dosage: 3 MG, Q8H

REACTIONS (3)
  - Memory impairment [Recovering/Resolving]
  - Dyskinesia [Recovering/Resolving]
  - Oedema peripheral [Recovered/Resolved]
